FAERS Safety Report 5294750-5 (Version None)
Quarter: 2007Q2

REPORT INFORMATION
  Report Type: 
  Country: None (occurrence: None)
  Receive Date: 20070409
  Receipt Date: 20070409
  Transmission Date: 20071010
  Serious: Yes (Hospitalization)
  Sender: FDA-Public Use
  Company Number: None

PATIENT
  Age: 65 Year
  Sex: Male
  Weight: 96.1626 kg

DRUGS (1)
  1. AVASTIN [Suspect]
     Indication: NON-SMALL CELL LUNG CANCER
     Dosage: 900 MG  Q3WEEKS  IV
     Route: 042
     Dates: start: 20070207, end: 20070321

REACTIONS (2)
  - DIVERTICULAR PERFORATION [None]
  - LARGE INTESTINE PERFORATION [None]
